FAERS Safety Report 8340652-7 (Version None)
Quarter: 2012Q1

REPORT INFORMATION
  Report Type: 
  Country: None (occurrence: None)
  Receive Date: 20120329
  Receipt Date: 20091006
  Transmission Date: 20120608
  Serious: Yes (Other)
  Sender: FDA-Public Use
  Company Number: PHEH2009US09899

PATIENT
  Age: 81 Year
  Sex: Male
  Weight: 88 kg

DRUGS (15)
  1. ISOSORBIDE MONONITRATE [Concomitant]
  2. LISINOPRIL [Concomitant]
  3. VITAMIN TAB [Concomitant]
  4. NITROQUICK (GLYCERYL TRINITRATE) [Concomitant]
  5. EXELON [Suspect]
     Indication: DEMENTIA
     Dosage: 4.6 MG, QD, TRANSDERMAL
     Route: 062
     Dates: start: 20081223
  6. EXELON [Suspect]
     Indication: PERSONALITY CHANGE
     Dosage: 4.6 MG, QD, TRANSDERMAL
     Route: 062
     Dates: start: 20081223
  7. NOVOLIN 70/30 [Concomitant]
  8. SINEMET CR [Concomitant]
  9. AMLODIPINE [Concomitant]
  10. TIMOLOL MALEATE [Concomitant]
  11. ZOLOFT (SERTRALINE) (SERTRALINE) [Concomitant]
  12. ASPIRIN [Concomitant]
  13. METOPROLOL TARTRATE [Concomitant]
  14. SIMVASTATIN [Concomitant]
  15. ZINC SULFATE (ZINC SULFATE) [Concomitant]

REACTIONS (11)
  - PRURITUS GENERALISED [None]
  - SINUS CONGESTION [None]
  - RHINITIS ALLERGIC [None]
  - APPLICATION SITE IRRITATION [None]
  - DERMATITIS [None]
  - DEPRESSION [None]
  - APPLICATION SITE PRURITUS [None]
  - APPLICATION SITE ERYTHEMA [None]
  - BLOOD PRESSURE INCREASED [None]
  - SENSATION OF PRESSURE [None]
  - RHINORRHOEA [None]
